FAERS Safety Report 9893180 (Version 1)
Quarter: 2014Q1

REPORT INFORMATION
  Report Type: Report from Study
  Country: CA (occurrence: CA)
  Receive Date: 20140213
  Receipt Date: 20140213
  Transmission Date: 20141002
  Serious: Yes (Other)
  Sender: FDA-Public Use
  Company Number: CA-ROCHE-1348211

PATIENT
  Age: 66 Year
  Sex: Female

DRUGS (6)
  1. RITUXAN [Suspect]
     Indication: POLYMYOSITIS
     Route: 042
     Dates: start: 20131205
  2. CELLCEPT [Suspect]
     Indication: PRODUCT USED FOR UNKNOWN INDICATION
     Route: 065
  3. ACETAMINOPHEN [Concomitant]
     Indication: PREMEDICATION
     Route: 048
     Dates: start: 20131205
  4. METHYLPREDNISOLONE [Concomitant]
     Indication: PREMEDICATION
     Route: 042
     Dates: start: 20131205
  5. DIPHENHYDRAMINE HCL [Concomitant]
     Indication: PREMEDICATION
     Route: 048
     Dates: start: 20131205
  6. PREDNISONE [Concomitant]

REACTIONS (2)
  - Extrasystoles [Not Recovered/Not Resolved]
  - Off label use [Unknown]
